FAERS Safety Report 10492840 (Version 1)
Quarter: 2014Q4

REPORT INFORMATION
  Report Type: Spontaneous
  Country: US (occurrence: US)
  Receive Date: 20141002
  Receipt Date: 20141002
  Transmission Date: 20150528
  Serious: No
  Sender: FDA-Public Use
  Company Number: US-GLAXOSMITHKLINE-A1076029A

PATIENT
  Sex: Female

DRUGS (4)
  1. COMBIVENT [Concomitant]
     Active Substance: ALBUTEROL SULFATE\IPRATROPIUM BROMIDE
  2. ADVAIR HFA [Suspect]
     Active Substance: FLUTICASONE PROPIONATE\SALMETEROL XINAFOATE
     Indication: ASTHMA
     Dosage: 1PUFF TWICE PER DAY
     Route: 055
  3. PRIMATENE MIST [Concomitant]
     Active Substance: EPINEPHRINE
  4. SEREVENT [Suspect]
     Active Substance: SALMETEROL XINAFOATE
     Indication: ASTHMA
     Route: 055
     Dates: start: 1990

REACTIONS (2)
  - Drug administration error [Unknown]
  - Drug ineffective [Unknown]
